FAERS Safety Report 25112142 (Version 1)
Quarter: 2025Q1

REPORT INFORMATION
  Report Type: Report from Study
  Country: AE (occurrence: AE)
  Receive Date: 20250324
  Receipt Date: 20250324
  Transmission Date: 20250408
  Serious: Yes (Other)
  Sender: ALEXION PHARMACEUTICALS
  Company Number: AE-AstraZeneca-CH-00829113A

PATIENT

DRUGS (2)
  1. ACALABRUTINIB [Suspect]
     Active Substance: ACALABRUTINIB
     Indication: Chronic lymphocytic leukaemia
     Dosage: 100 MILLIGRAM, Q12H
  2. TAMSULOSIN HYDROCHLORIDE [Concomitant]
     Active Substance: TAMSULOSIN HYDROCHLORIDE
     Route: 065

REACTIONS (2)
  - Chronic kidney disease [Unknown]
  - Prostatomegaly [Unknown]
